FAERS Safety Report 12989543 (Version 1)
Quarter: 2016Q4

REPORT INFORMATION
  Report Type: Report from Study
  Country: FR (occurrence: FR)
  Receive Date: 20161201
  Receipt Date: 20161201
  Transmission Date: 20170207
  Serious: Yes (Death)
  Sender: FDA-Public Use
  Company Number: FR-ROCHE-1861700

PATIENT

DRUGS (1)
  1. ALTEPLASE [Suspect]
     Active Substance: ALTEPLASE
     Indication: PULMONARY EMBOLISM
     Dosage: 1 MG/KG FOR 10 MINUTES
     Route: 040

REACTIONS (3)
  - Haemorrhagic stroke [Fatal]
  - Head injury [Fatal]
  - Cerebral haemorrhage [Fatal]
